FAERS Safety Report 8543392-4 (Version None)
Quarter: 2012Q3

REPORT INFORMATION
  Report Type: 
  Country: None (occurrence: None)
  Receive Date: 20120727
  Receipt Date: 20120716
  Transmission Date: 20120928
  Serious: Yes (Hospitalization)
  Sender: FDA-Public Use
  Company Number: US-BAYER-2012-072149

PATIENT
  Age: 27 Year
  Sex: Female

DRUGS (5)
  1. MOTRIN [Concomitant]
     Indication: PAIN
  2. MORPHINE SULFATE [Concomitant]
     Indication: PAIN
  3. ROLAIDS [Concomitant]
     Indication: PAIN
  4. VICODIN [Concomitant]
     Indication: PAIN
  5. YAZ [Suspect]

REACTIONS (1)
  - PULMONARY EMBOLISM [None]
